FAERS Safety Report 13959726 (Version 1)
Quarter: 2017Q3

REPORT INFORMATION
  Report Type: Spontaneous
  Country: FR (occurrence: FR)
  Receive Date: 20170911
  Receipt Date: 20170911
  Transmission Date: 20171128
  Serious: Yes (Hospitalization, Other)
  Sender: FDA-Public Use
  Company Number: FR-ALLERGAN-1751121US

PATIENT
  Age: 102 Year
  Sex: Female

DRUGS (7)
  1. KARDEGIC [Suspect]
     Active Substance: ASPIRIN LYSINE
     Indication: ARTERITIS
     Route: 048
     Dates: end: 20170801
  2. CORTANCYL [Suspect]
     Active Substance: PREDNISONE
     Indication: POLYMYALGIA RHEUMATICA
     Route: 048
     Dates: start: 201701
  3. ALTIZIDE [Concomitant]
     Active Substance: ALTHIAZIDE
     Indication: PRODUCT USED FOR UNKNOWN INDICATION
     Route: 065
  4. ATORVASTATIN [Concomitant]
     Active Substance: ATORVASTATIN
     Indication: PRODUCT USED FOR UNKNOWN INDICATION
     Route: 065
  5. NAFTIDROFURYL [Concomitant]
     Active Substance: NAFRONYL
     Indication: PRODUCT USED FOR UNKNOWN INDICATION
     Route: 065
  6. ESCITALOPRAM OXALATE - BP [Suspect]
     Active Substance: ESCITALOPRAM OXALATE
     Indication: DEPRESSION
     Route: 048
  7. SPIRONOLACTONE. [Concomitant]
     Active Substance: SPIRONOLACTONE
     Indication: PRODUCT USED FOR UNKNOWN INDICATION
     Route: 065

REACTIONS (11)
  - Abdominal distension [Unknown]
  - Melaena [Unknown]
  - Vomiting [Unknown]
  - Haematemesis [Unknown]
  - Pallor [Unknown]
  - Acute kidney injury [Unknown]
  - Hypotension [Unknown]
  - Tachycardia [Unknown]
  - Nutritional condition abnormal [Unknown]
  - Gastrointestinal haemorrhage [Unknown]
  - Anaemia [Unknown]

NARRATIVE: CASE EVENT DATE: 20170727
